FAERS Safety Report 9901734 (Version 2)
Quarter: 2014Q1

REPORT INFORMATION
  Report Type: Spontaneous
  Country: US (occurrence: US)
  Receive Date: 20140217
  Receipt Date: 20140305
  Transmission Date: 20141002
  Serious: No
  Sender: FDA-Public Use
  Company Number: US-009507513-1402USA008015

PATIENT
  Age: 81 Year
  Sex: Female
  Weight: 63.49 kg

DRUGS (8)
  1. OXYTROL FOR WOMEN [Suspect]
     Indication: NOCTURIA
     Dosage: 1 DF, Q4D
     Route: 062
     Dates: start: 201401
  2. OXYTROL FOR WOMEN [Suspect]
     Indication: INCONTINENCE
  3. ENTOCORT [Concomitant]
     Indication: COLITIS
     Dosage: UNK, UNKNOWN
  4. PRILOSEC [Concomitant]
     Indication: GASTROOESOPHAGEAL REFLUX DISEASE
     Dosage: UNK, UNKNOWN
  5. LEXAPRO [Concomitant]
     Indication: DEPRESSION
     Dosage: UNK, UNKNOWN
  6. CHOLECALCIFEROL [Concomitant]
     Indication: PRODUCT USED FOR UNKNOWN INDICATION
     Dosage: UNK, UNKNOWN
  7. ASPIRIN [Concomitant]
     Indication: PRODUCT USED FOR UNKNOWN INDICATION
     Dosage: UNK, UNKNOWN
  8. GARLIC [Concomitant]
     Indication: PRODUCT USED FOR UNKNOWN INDICATION
     Dosage: UNK, UNKNOWN

REACTIONS (4)
  - Abdominal pain [Recovered/Resolved]
  - Abdominal discomfort [Recovered/Resolved]
  - Pruritus [Unknown]
  - Drug ineffective [Unknown]
